FAERS Safety Report 9246993 (Version 1)
Quarter: 2013Q2

REPORT INFORMATION
  Report Type: Spontaneous
  Country: CN (occurrence: CN)
  Receive Date: 20130422
  Receipt Date: 20130422
  Transmission Date: 20140414
  Serious: Yes (Other)
  Sender: FDA-Public Use
  Company Number: CN-ASTRAZENECA-2013SE17459

PATIENT
  Sex: 0

DRUGS (2)
  1. PULMICORT RESPULES [Suspect]
     Indication: LUNG INFECTION
     Route: 055
  2. ANTIBIOTIC [Concomitant]

REACTIONS (3)
  - Lung infection [Unknown]
  - Oropharyngeal discomfort [Unknown]
  - Drug ineffective for unapproved indication [Unknown]
